FAERS Safety Report 18462188 (Version 1)
Quarter: 2020Q4

REPORT INFORMATION
  Report Type: Spontaneous
  Country: US (occurrence: US)
  Receive Date: 20201103
  Receipt Date: 20201103
  Transmission Date: 20210114
  Serious: No
  Sender: FDA-Public Use
  Company Number: None

PATIENT
  Age: 66 Year
  Sex: Female

DRUGS (10)
  1. XGEVA 120 MG/1.7 ML [Concomitant]
  2. TEMAZEPAM ORAL [Concomitant]
  3. CAPECITABINE. [Suspect]
     Active Substance: CAPECITABINE
     Indication: BREAST CANCER FEMALE
     Route: 048
     Dates: start: 20200803
  4. CAPECITABINE. [Suspect]
     Active Substance: CAPECITABINE
     Indication: BONE CANCER
     Route: 048
     Dates: start: 20200803
  5. LYRICA 75 MG ORAL [Concomitant]
  6. MULTIVITAMIN ADULT ORAL [Concomitant]
  7. MELOXICAM ORAL [Concomitant]
  8. LORAZEPAM ORAL [Concomitant]
  9. MAXALT ORAL [Concomitant]
  10. TRAMADOL HCL 50 MG ORAL [Concomitant]

REACTIONS (1)
  - Drug ineffective [None]

NARRATIVE: CASE EVENT DATE: 20201103
